FAERS Safety Report 9871232 (Version 2)
Quarter: 2014Q2

REPORT INFORMATION
  Report Type: Spontaneous
  Country: US (occurrence: US)
  Receive Date: 20140205
  Receipt Date: 20140428
  Transmission Date: 20141212
  Serious: Yes (Other)
  Sender: FDA-Public Use
  Company Number: US-GLAXOSMITHKLINE-A1058513A

PATIENT
  Age: 66 Year
  Sex: Female

DRUGS (6)
  1. VENTOLIN HFA [Suspect]
     Indication: ASTHMA
     Dosage: 2PUFF THREE TIMES PER DAY
     Route: 055
     Dates: start: 2003
  2. ADVAIR HFA [Suspect]
     Indication: ASTHMA
     Dosage: 2PUFF TWICE PER DAY
     Route: 055
     Dates: start: 2003, end: 2005
  3. FLOVENT [Suspect]
     Indication: ASTHMA
     Dosage: 3PUFF TWICE PER DAY
     Route: 055
     Dates: start: 2005
  4. UNKNOWN DEVICE [Suspect]
  5. SINGULAIR [Concomitant]
  6. ATENOLOL [Concomitant]

REACTIONS (14)
  - Pneumonia [Recovering/Resolving]
  - Cardiac arrest [Unknown]
  - Drug ineffective [Unknown]
  - Inhalation therapy [Unknown]
  - Oropharyngeal spasm [Unknown]
  - Off label use [Unknown]
  - Drug administration error [Unknown]
  - Epinephrine abnormal [Unknown]
  - Dyspnoea [Unknown]
  - Foreign body [Unknown]
  - Asthma [Unknown]
  - Stress [Unknown]
  - Cardiac stress test abnormal [Unknown]
  - Product quality issue [Unknown]
